FAERS Safety Report 18954598 (Version 1)
Quarter: 2021Q1

REPORT INFORMATION
  Report Type: Spontaneous
  Country: US (occurrence: US)
  Receive Date: 20210301
  Receipt Date: 20210301
  Transmission Date: 20210420
  Serious: No
  Sender: FDA-Public Use
  Company Number: US-TAKEDA-2021TUS012181

PATIENT
  Age: 77 Year
  Sex: Male

DRUGS (1)
  1. NINLARO [Suspect]
     Active Substance: IXAZOMIB CITRATE
     Indication: PRODUCT USED FOR UNKNOWN INDICATION
     Dosage: 4 MILLIGRAM
     Route: 048
     Dates: start: 202101

REACTIONS (4)
  - No adverse event [Unknown]
  - Accidental exposure to product [Unknown]
  - Off label use [Unknown]
  - Product physical issue [Unknown]

NARRATIVE: CASE EVENT DATE: 20210223
